FAERS Safety Report 18555725 (Version 1)
Quarter: 2020Q4

REPORT INFORMATION
  Report Type: Spontaneous
  Country: US (occurrence: US)
  Receive Date: 20201127
  Receipt Date: 20201127
  Transmission Date: 20210114
  Serious: No
  Sender: FDA-Public Use
  Company Number: US-PFIZER INC-2016344322

PATIENT
  Age: 77 Year
  Sex: Female
  Weight: 89 kg

DRUGS (27)
  1. LYRICA [Suspect]
     Active Substance: PREGABALIN
     Indication: BACK DISORDER
  2. KETOCONAZOLE. [Concomitant]
     Active Substance: KETOCONAZOLE
     Dosage: 2 %, 2X/DAY (TWICE A DAY (FOR 1-2 WEEKS))
     Dates: start: 20130115
  3. LOPRESSOR [Concomitant]
     Active Substance: METOPROLOL TARTRATE
     Dosage: 50 MG (1 TABLET) TWICE A DAY
     Route: 048
     Dates: start: 20141002
  4. PERPHENAZINE-AMITRIPTYLINE [Concomitant]
     Active Substance: AMITRIPTYLINE\PERPHENAZINE
     Dosage: 2-10 MG (1 TABLET) DAILY 1X/DAY (DAILY AT BEDTIME)
     Route: 048
     Dates: start: 20111227
  5. ZOLOFT [Concomitant]
     Active Substance: SERTRALINE HYDROCHLORIDE
     Dosage: 100 MG (1 TABLET) TWICE A DAY
     Route: 048
     Dates: start: 20150302
  6. ALPRAZOLAM. [Concomitant]
     Active Substance: ALPRAZOLAM
     Dosage: 1 MG (1 TABLET) TWICE DAILY 2 TABS EVERY HS
     Route: 048
  7. NORCO [Concomitant]
     Active Substance: ACETAMINOPHEN\HYDROCODONE BITARTRATE
     Indication: PAIN
     Dosage: 1 DF, AS NEEDED (1 TABLET EVERY 4 HOURS PRN AS NEEDED FOR PAIN (NOT TO EXCEED 5 TABLETS PER DAY))
     Route: 048
     Dates: start: 20131230
  8. PROTONIX [Concomitant]
     Active Substance: PANTOPRAZOLE SODIUM
     Dosage: 40 MG (1 TABLET) DAILY
     Route: 048
     Dates: start: 20150202
  9. POTASSIUM CHLORIDE. [Concomitant]
     Active Substance: POTASSIUM CHLORIDE
     Dosage: 10 MEQ (1 CAPSULE) DAILY
     Route: 048
     Dates: start: 20130115
  10. PYRIDIUM [Concomitant]
     Active Substance: PHENAZOPYRIDINE
     Dosage: 100 MG (1 TABLET) THREE TIMES A DAY AS NEEDED FOR 3 DAYS
     Route: 048
     Dates: start: 20140506
  11. TRIAMCINOLONE ACETONIDE. [Concomitant]
     Active Substance: TRIAMCINOLONE ACETONIDE
     Dosage: UNK, 2-3 TIMES DAILY TO AFFECTED AREA
     Dates: start: 20130301
  12. LYRICA [Suspect]
     Active Substance: PREGABALIN
     Indication: RESTLESS LEGS SYNDROME
  13. LYRICA [Suspect]
     Active Substance: PREGABALIN
     Indication: BONE DISORDER
  14. FUROSEMIDE. [Concomitant]
     Active Substance: FUROSEMIDE
     Dosage: 1 TAB TWICE A DAY ALTERNATING WITH 2 TABS TWICE A DAY OR AS DIRECTED
     Route: 048
     Dates: start: 20130109
  15. TIZANIDINE HCL [Concomitant]
     Active Substance: TIZANIDINE HYDROCHLORIDE
     Dosage: 4 MG (1 TABLET) TWICE A DAY
     Route: 048
     Dates: start: 20160427
  16. LYRICA [Suspect]
     Active Substance: PREGABALIN
     Indication: INTERVERTEBRAL DISC PROTRUSION
     Dosage: 75 MG, 2X/DAY
     Route: 048
     Dates: start: 20130410
  17. FISH OIL [Concomitant]
     Active Substance: FISH OIL
     Dosage: 1000 MG, UNK (2 DAILY)
     Route: 048
     Dates: start: 20140506
  18. LOSARTAN POTASSIUM. [Concomitant]
     Active Substance: LOSARTAN POTASSIUM
     Dosage: 50 MG (1 TABLET) TWICE A DAY
     Route: 048
     Dates: start: 20130115
  19. NITROSTAT [Concomitant]
     Active Substance: NITROGLYCERIN
     Indication: CHEST PAIN
     Dosage: 0.4 MG (1 TABLET) EVERY 5 MINUTES FOR UP TO 3 DOSES AS NEEDED
     Route: 060
     Dates: start: 20130116
  20. LOMOTIL [Concomitant]
     Active Substance: ATROPINE SULFATE\DIPHENOXYLATE HYDROCHLORIDE
     Indication: DIARRHOEA
     Dosage: UNK UNK, AS NEEDED (2 TABS INITIALLY THEN 1 EVERY 1 HOUR AS NEEDED FOR DIARRHEA)
     Route: 048
     Dates: start: 20140506
  21. METFORMIN HCL [Concomitant]
     Active Substance: METFORMIN HYDROCHLORIDE
     Dosage: 500 MG (1 TABLET) THREE TIMES A DAY
     Route: 048
     Dates: start: 20130425
  22. LYRICA [Suspect]
     Active Substance: PREGABALIN
     Indication: MULTIPLE SCLEROSIS
     Dosage: 75 MG, 2X/DAY
     Route: 048
  23. NORVASC [Concomitant]
     Active Substance: AMLODIPINE BESYLATE
     Dosage: 5 MG DAILY (1 TABLET)
     Route: 048
     Dates: start: 20130124
  24. ASPIRIN. [Concomitant]
     Active Substance: ASPIRIN
     Dosage: 81 MG DAILY (1 TABLET)
  25. GLIMEPIRIDE. [Concomitant]
     Active Substance: GLIMEPIRIDE
     Dosage: 1 MG (1 TABLET) DAILY
     Route: 048
     Dates: start: 20150923
  26. PRAVASTATIN SODIUM. [Concomitant]
     Active Substance: PRAVASTATIN SODIUM
     Dosage: 40 MG (1 TABLET) DAILY
     Route: 048
     Dates: start: 20150513
  27. FUROSEMIDE. [Concomitant]
     Active Substance: FUROSEMIDE
     Dosage: 2 TABS TWICE A DAY ALTERNATING WITH 1 TAB TWICE A DAY OR AS DIRECTED
     Route: 048
     Dates: start: 20130109

REACTIONS (1)
  - Hypoacusis [Unknown]
